FAERS Safety Report 7080788-4 (Version None)
Quarter: 2010Q4

REPORT INFORMATION
  Report Type: 
  Country: None (occurrence: None)
  Receive Date: 20101103
  Receipt Date: 20101028
  Transmission Date: 20110411
  Serious: Yes (Other)
  Sender: FDA-Public Use
  Company Number: PT-JNJCH-2010023507

PATIENT
  Age: 56 Year
  Sex: Male

DRUGS (1)
  1. LISTERINE MENTHOL [Suspect]
     Indication: DENTAL DISORDER PROPHYLAXIS
     Dosage: TEXT:20 ML ONCE
     Route: 048
     Dates: start: 20101010, end: 20101010

REACTIONS (3)
  - LIP SWELLING [None]
  - PRODUCT QUALITY ISSUE [None]
  - SWELLING FACE [None]
